FAERS Safety Report 6818094-2 (Version None)
Quarter: 2010Q3

REPORT INFORMATION
  Report Type: 
  Country: None (occurrence: None)
  Receive Date: 20100706
  Receipt Date: 20100628
  Transmission Date: 20110219
  Serious: Yes (Hospitalization)
  Sender: FDA-Public Use
  Company Number: FR-GENENTECH-303048

PATIENT
  Sex: Male

DRUGS (4)
  1. RITUXIMAB [Suspect]
     Indication: MANTLE CELL LYMPHOMA
     Dosage: UNK
     Route: 042
     Dates: start: 20090715
  2. CISPLATIN [Suspect]
     Indication: MANTLE CELL LYMPHOMA
     Dosage: 171 MG, UNK
     Route: 042
     Dates: start: 20090716
  3. CYTARABINE [Suspect]
     Indication: MANTLE CELL LYMPHOMA
     Dosage: 6.8 G, UNK
     Route: 042
     Dates: start: 20090717
  4. DEXAMETASONE [Suspect]
     Indication: MANTLE CELL LYMPHOMA
     Dosage: 40 MG, QD
     Route: 065
     Dates: start: 20090716, end: 20090719

REACTIONS (2)
  - EPISTAXIS [None]
  - THROMBOCYTOPENIA [None]
